FAERS Safety Report 10758685 (Version 2)
Quarter: 2015Q1

REPORT INFORMATION
  Report Type: Report from Study
  Country: US (occurrence: US)
  Receive Date: 20150203
  Receipt Date: 20150211
  Transmission Date: 20150721
  Serious: Yes (Death, Life-Threatening, Hospitalization, Disabling, Other)
  Sender: FDA-Public Use
  Company Number: US-AMGEN-USACT2014084756

PATIENT
  Age: 64 Year
  Sex: Male
  Weight: 125.5 kg

DRUGS (38)
  1. HYPER CVAD [Concomitant]
     Dosage: UNK
     Dates: start: 20141022
  2. INSULIN ASPART [Concomitant]
     Active Substance: INSULIN ASPART
     Dosage: 24 UNK, UNK
     Route: 058
     Dates: start: 20140918, end: 20141020
  3. FUROSEMIDE. [Concomitant]
     Active Substance: FUROSEMIDE
     Dosage: 40 MG, UNK
     Route: 042
     Dates: start: 20141007, end: 20141018
  4. CYCLOPHOSPHAMIDE. [Concomitant]
     Active Substance: CYCLOPHOSPHAMIDE
     Dosage: 750 MG, UNK
     Route: 042
     Dates: start: 20141022, end: 20141025
  5. ACYCLOVIR                          /00587301/ [Concomitant]
     Active Substance: ACYCLOVIR
     Dosage: 400 MG, UNK
     Route: 048
     Dates: start: 20140709, end: 20141025
  6. OMEPRAZOLE. [Concomitant]
     Active Substance: OMEPRAZOLE
     Dosage: 10 MG, UNK
     Route: 048
     Dates: start: 20140916, end: 20140916
  7. NIFEDIPINE. [Concomitant]
     Active Substance: NIFEDIPINE
     Dosage: 30 G, UNK
     Route: 061
     Dates: start: 20141001
  8. BLINATUMOMAB [Suspect]
     Active Substance: BLINATUMOMAB
     Indication: ACUTE LYMPHOCYTIC LEUKAEMIA
     Dosage: 28 MUG, UNK
     Route: 041
     Dates: start: 20140922, end: 20141020
  9. DEXAMETHASONE PHOSPHATE SODIUM [Concomitant]
     Dosage: 24 MG, UNK
     Route: 042
     Dates: start: 20140916, end: 20140920
  10. ZOSYN [Concomitant]
     Active Substance: PIPERACILLIN SODIUM\TAZOBACTAM SODIUM
     Dosage: 4.5 G, UNK
     Route: 042
     Dates: start: 20141005, end: 20141020
  11. ALBUMIN [Concomitant]
     Active Substance: ALBUMIN (HUMAN)
     Dosage: 50 ML, UNK
     Route: 042
     Dates: start: 20141012, end: 20141012
  12. SUCRALFATE. [Concomitant]
     Active Substance: SUCRALFATE
     Dosage: 4 G, UNK
     Route: 048
     Dates: start: 20141010
  13. ACETAMINOPHEN. [Concomitant]
     Active Substance: ACETAMINOPHEN
     Dosage: 325 UNK, UNK
     Route: 048
     Dates: start: 20140706, end: 20141025
  14. LIDOCAINE. [Concomitant]
     Active Substance: LIDOCAINE
     Dosage: 1 MG, UNK
     Route: 023
     Dates: start: 20140920, end: 20140920
  15. VORICONAZOLE. [Concomitant]
     Active Substance: VORICONAZOLE
     Dosage: 400 MG, UNK
     Route: 048
     Dates: start: 20140912, end: 20141020
  16. LACTULOSE. [Concomitant]
     Active Substance: LACTULOSE
     Dosage: 10 G, UNK
     Route: 048
     Dates: start: 20141003, end: 20141015
  17. PENTAMIDINE [Concomitant]
     Active Substance: PENTAMIDINE
     Dosage: 300 MG, UNK
     Route: 050
     Dates: start: 20141021, end: 20141021
  18. METHOTREXATE [Concomitant]
     Active Substance: METHOTREXATE
     Dosage: 12 MG, UNK
     Route: 037
     Dates: start: 20140919, end: 20140919
  19. OXYCODONE [Concomitant]
     Active Substance: OXYCODONE
     Dosage: 5-10 MG, UNK
     Route: 048
     Dates: start: 20140915
  20. DOCUSATE W/SENNA [Concomitant]
     Dosage: 50 UNK, UNK
     Route: 048
     Dates: start: 20140926, end: 20141025
  21. LEVOFLOXACIN. [Concomitant]
     Active Substance: LEVOFLOXACIN
     Dosage: 500 MG, UNK
     Route: 048
     Dates: start: 20140912, end: 20141025
  22. ISOPHANE INSULIN [Concomitant]
     Active Substance: INSULIN NOS
     Dosage: 8 UNK, UNK
     Route: 058
     Dates: start: 20141001, end: 20141017
  23. PANTOPRAZOLE [Concomitant]
     Active Substance: PANTOPRAZOLE SODIUM
     Dosage: 160 MG, UNK
     Route: 042
     Dates: start: 20140916, end: 20141027
  24. DEXAMETHASONE. [Concomitant]
     Active Substance: DEXAMETHASONE
     Dosage: 20 MG, UNK
     Dates: start: 20140922, end: 20140929
  25. CASPOFUNGIN [Concomitant]
     Active Substance: CASPOFUNGIN
     Dosage: 50 MG, UNK
     Route: 042
     Dates: start: 20141021, end: 20141026
  26. ALBUTEROL                          /00139501/ [Concomitant]
     Active Substance: ALBUTEROL
     Dosage: 2.5 MG, UNK
     Route: 050
     Dates: start: 20141021, end: 20141021
  27. ALLOPURINOL. [Concomitant]
     Active Substance: ALLOPURINOL
     Dosage: 300 MG, UNK
     Route: 048
     Dates: start: 20140709, end: 20141024
  28. INFLUENZA VIRUS VACCINE [Concomitant]
     Active Substance: INFLUENZA VIRUS VACCINE
     Dosage: 0.5 MG, UNK
     Route: 030
     Dates: start: 20141001, end: 20141001
  29. THROMBIN [Concomitant]
     Active Substance: THROMBIN
     Dosage: 5000 UNK, UNK
     Route: 061
     Dates: start: 20141001, end: 20141025
  30. VANCOMYCIN [Concomitant]
     Active Substance: VANCOMYCIN
     Dosage: 1900 MG, UNK
     Route: 042
     Dates: start: 20141005, end: 20141009
  31. RED BLOOD CELLS [Concomitant]
     Active Substance: HUMAN RED BLOOD CELL
     Dosage: 1-2 UNK, UNK
     Route: 042
     Dates: start: 20140911, end: 20141027
  32. PLATELETS [Concomitant]
     Active Substance: HUMAN PLATELET, ALLOGENIC
     Dosage: 1- 2 UNK, UNK
     Route: 042
     Dates: start: 20140912, end: 20141027
  33. AMINOCAPROIC ACID. [Concomitant]
     Active Substance: AMINOCAPROIC ACID
     Dosage: 800-1250, UNK
     Route: 048
     Dates: start: 20140922, end: 20141027
  34. CHLORHEXIDINE [Concomitant]
     Active Substance: CHLORHEXIDINE
     Dosage: 15 ML, UNK
     Route: 050
     Dates: start: 20140924
  35. POLYETHYLENE GLYCOL [Concomitant]
     Active Substance: POLYETHYLENE GLYCOLS
     Dosage: 10 G, UNK
     Route: 048
     Dates: start: 20141002, end: 20141014
  36. PIPERACILLIN W/TAZOBACTAM          /01173601/ [Concomitant]
     Dosage: 3.375 - 4.5 G, UNK
     Route: 042
     Dates: start: 20141005
  37. POTASSIUM CHLORIDE. [Concomitant]
     Active Substance: POTASSIUM CHLORIDE
     Dosage: 10 MEQ, UNK
     Route: 048
     Dates: start: 20141008, end: 20141019
  38. SPIRONOLACTONE. [Concomitant]
     Active Substance: SPIRONOLACTONE
     Dosage: 12.5 MG, UNK
     Route: 048
     Dates: start: 20141010

REACTIONS (3)
  - Sepsis syndrome [Fatal]
  - Multi-organ failure [Unknown]
  - Gastric haemorrhage [Not Recovered/Not Resolved]

NARRATIVE: CASE EVENT DATE: 20141025
